FAERS Safety Report 5684567-1 (Version None)
Quarter: 2008Q1

REPORT INFORMATION
  Report Type: 
  Country: None (occurrence: None)
  Receive Date: 20080328
  Receipt Date: 20070220
  Transmission Date: 20080703
  Serious: No
  Sender: FDA-Public Use
  Company Number: US-BRISTOL-MYERS SQUIBB COMPANY-13684394

PATIENT
  Age: 54 Year
  Sex: Female
  Weight: 71 kg

DRUGS (6)
  1. ERBITUX [Suspect]
     Indication: BREAST CANCER
     Dates: start: 20070213, end: 20070213
  2. NORVASC [Concomitant]
  3. ALTACE [Concomitant]
  4. ASPIRIN [Concomitant]
  5. SENOKOT [Concomitant]
  6. MUCINEX [Concomitant]

REACTIONS (1)
  - DERMATITIS ACNEIFORM [None]
